FAERS Safety Report 12610752 (Version 1)
Quarter: 2016Q3

REPORT INFORMATION
  Report Type: Spontaneous
  Country: US (occurrence: US)
  Receive Date: 20160801
  Receipt Date: 20160801
  Transmission Date: 20161109
  Serious: Yes (Other)
  Sender: FDA-Public Use
  Company Number: US-AMNEAL PHARMACEUTICALS-2016AMN00418

PATIENT
  Sex: Female
  Weight: 79.37 kg

DRUGS (1)
  1. GABAPENTIN. [Suspect]
     Active Substance: GABAPENTIN

REACTIONS (5)
  - Cardiac disorder [Unknown]
  - Adverse reaction [Unknown]
  - Insomnia [Unknown]
  - Dyspnoea [Unknown]
  - Asthma [Unknown]
